FAERS Safety Report 21554782 (Version 2)
Quarter: 2022Q4

REPORT INFORMATION
  Report Type: Spontaneous
  Country: US (occurrence: US)
  Receive Date: 20221104
  Receipt Date: 20221107
  Transmission Date: 20230112
  Serious: No
  Sender: FDA-Public Use
  Company Number: US-PFIZER INC-202201271514

PATIENT
  Age: 70 Year
  Sex: Female
  Weight: 95.25 kg

DRUGS (2)
  1. PAXLOVID [Suspect]
     Active Substance: NIRMATRELVIR\RITONAVIR
     Indication: COVID-19 treatment
     Dosage: UNK, 2X/DAY (TWICE A DAY FOR 5 DAYS)
     Dates: start: 20221101
  2. TYLENOL [Concomitant]
     Active Substance: ACETAMINOPHEN
     Dosage: UNK
     Dates: start: 20221031

REACTIONS (7)
  - Labelled drug-food interaction issue [Unknown]
  - Dysgeusia [Unknown]
  - Hypoaesthesia [Unknown]
  - Feeling abnormal [Unknown]
  - Dysgeusia [Unknown]
  - Paraesthesia [Unknown]
  - Gastric disorder [Unknown]

NARRATIVE: CASE EVENT DATE: 20221101
